FAERS Safety Report 8483001-6 (Version None)
Quarter: 2012Q3

REPORT INFORMATION
  Report Type: 
  Country: None (occurrence: None)
  Receive Date: 20120702
  Receipt Date: 20120626
  Transmission Date: 20120928
  Serious: Yes (Death)
  Sender: FDA-Public Use
  Company Number: FI-JNJFOC-20120613506

PATIENT

DRUGS (36)
  1. VENLAFAXINE [Suspect]
     Indication: MENTAL DISORDER
     Route: 065
  2. STATINS [Concomitant]
     Route: 065
  3. ACE INHIBITOR [Concomitant]
     Route: 065
  4. ANTIDEPRESSANTS [Suspect]
     Indication: PRODUCT USED FOR UNKNOWN INDICATION
     Route: 065
  5. PHENOTHIAZINE [Suspect]
     Indication: MENTAL DISORDER
     Route: 065
  6. TRICYCLIC ANTIDEPRESSANT [Suspect]
     Indication: MENTAL DISORDER
     Route: 065
  7. BENZODIAZEPINE NOS [Suspect]
     Indication: MENTAL DISORDER
     Route: 065
  8. NITROGLYCERIN [Concomitant]
     Route: 065
  9. BETA-BLOCKER (NAME UNSPECIFIED) [Concomitant]
     Route: 065
  10. WARFARIN SODIUM [Concomitant]
     Route: 065
  11. AMIODARONE HYDROCHLORIDE [Concomitant]
     Route: 065
  12. SOTALOL HCL [Concomitant]
     Route: 065
  13. UNKNOWN MEDICATION [Suspect]
     Indication: MENTAL DISORDER
     Route: 065
  14. MIRTAZAPINE [Suspect]
     Indication: MENTAL DISORDER
     Route: 065
  15. ASPIRIN [Concomitant]
     Route: 065
  16. CA CHANNEL BLOCKER [Concomitant]
     Route: 065
  17. DIURETIC [Concomitant]
     Route: 065
  18. FLECAINIDE ACETATE [Concomitant]
     Route: 065
  19. DIGOXIN [Concomitant]
     Route: 065
  20. INSULIN [Concomitant]
     Route: 065
  21. UNSPECIFIED COPD MEDICATIONS [Concomitant]
     Indication: CHRONIC OBSTRUCTIVE PULMONARY DISEASE
     Route: 065
  22. RISPERIDONE [Suspect]
     Indication: MENTAL DISORDER
     Route: 065
  23. CLOZAPINE [Suspect]
     Indication: MENTAL DISORDER
     Route: 065
  24. OLANZAPINE [Suspect]
     Indication: MENTAL DISORDER
     Route: 065
  25. UNSPECIFIED COPD MEDICATIONS [Concomitant]
     Indication: ASTHMA
     Route: 065
  26. LIPID LOWERING THERAPY [Concomitant]
     Route: 065
  27. ARIPIPRAZOLE [Suspect]
     Indication: MENTAL DISORDER
     Route: 065
  28. QUETIAPINE [Suspect]
     Indication: MENTAL DISORDER
     Route: 065
  29. SSRI [Suspect]
     Indication: MENTAL DISORDER
     Route: 065
  30. UNKNOWN MEDICATION [Concomitant]
     Route: 065
  31. UNSPECIFIED ANTIPSYCHOTICS [Suspect]
     Indication: MENTAL DISORDER
     Route: 065
  32. UNKNOWN MEDICATION [Suspect]
     Route: 065
  33. MIANSERIN [Suspect]
     Indication: MENTAL DISORDER
     Route: 065
  34. UNKNOWN MEDICATION [Suspect]
     Route: 065
  35. NITRATES [Concomitant]
     Route: 065
  36. METFORMIN HCL [Concomitant]
     Route: 065

REACTIONS (1)
  - ACUTE CORONARY SYNDROME [None]
